FAERS Safety Report 18535799 (Version 7)
Quarter: 2021Q2

REPORT INFORMATION
  Report Type: Spontaneous
  Country: US (occurrence: US)
  Receive Date: 20201123
  Receipt Date: 20210416
  Transmission Date: 20210717
  Serious: Yes (Other)
  Sender: FDA-Public Use
  Company Number: US-BIOGEN-2020BI00948322

PATIENT
  Age: 51 Year
  Sex: Female
  Weight: 63.5 kg

DRUGS (21)
  1. CHLORPHEN?PSUDOEPHED?APAP (SINGLET PO) [Concomitant]
     Indication: PRODUCT USED FOR UNKNOWN INDICATION
     Dosage: TAKE BY MOUTH
     Route: 048
  2. TYSABRI [Suspect]
     Active Substance: NATALIZUMAB
     Indication: MULTIPLE SCLEROSIS
     Dosage: INFUSED OVER 1 HOUR
     Route: 042
     Dates: start: 20121218, end: 202004
  3. ARMODAFINIL. [Concomitant]
     Active Substance: ARMODAFINIL
     Indication: PRODUCT USED FOR UNKNOWN INDICATION
     Dosage: TAKE 1 TABLET BY MOUTH EVERY MORNING
     Route: 048
  4. PROPOFOL (DIPRIVAN) [Concomitant]
     Indication: PREMEDICATION
     Route: 042
     Dates: start: 20201210
  5. EFFEXOR [Concomitant]
     Active Substance: VENLAFAXINE HYDROCHLORIDE
     Indication: ANTIDEPRESSANT THERAPY
     Route: 048
     Dates: start: 20181116
  6. OXYBUTYNIN CHLORIDE. [Concomitant]
     Active Substance: OXYBUTYNIN CHLORIDE
     Indication: NEUROGENIC BLADDER
     Route: 048
     Dates: start: 20200501
  7. XANAX [Concomitant]
     Active Substance: ALPRAZOLAM
     Indication: PRODUCT USED FOR UNKNOWN INDICATION
     Dosage: TAKE 1 TABLET THREE TIMES A DAY AS NEEDED
     Route: 065
  8. HYDROCODONE?IBUPROFEN (VICOPROFEN) [Concomitant]
     Indication: PAIN
     Dosage: 5?200 MG PER TABLET ? TAKE 1 TABLET BY MOUTH EVERY 8 HOURS AS NEEDED
     Route: 048
  9. ROCURONIUM (ZEMURON) 50 MG/5 ML [Concomitant]
     Indication: PREMEDICATION
     Route: 042
     Dates: start: 20201210
  10. TYSABRI [Suspect]
     Active Substance: NATALIZUMAB
     Dosage: INFUSED OVER 1 HOUR
     Route: 042
     Dates: start: 202004
  11. LIPITOR [Concomitant]
     Active Substance: ATORVASTATIN CALCIUM
     Indication: PRODUCT USED FOR UNKNOWN INDICATION
     Route: 065
  12. PROPOFOL (DIPRIVAN) [Concomitant]
     Dosage: 50 MCG/KG/MIN
     Route: 042
     Dates: start: 20201210
  13. LACTATOD RINGERS [Concomitant]
     Indication: PREMEDICATION
     Dosage: ML IV
     Route: 042
     Dates: start: 20201210
  14. VITAMIN B12 [Concomitant]
     Active Substance: CYANOCOBALAMIN
     Indication: VITAMIN B12 DEFICIENCY
     Route: 048
     Dates: start: 20180901
  15. NUVIGIL [Concomitant]
     Active Substance: ARMODAFINIL
     Indication: FATIGUE
     Route: 048
     Dates: start: 20200918
  16. FENTANYL (SUBLIMAZE) [Concomitant]
     Indication: PREMEDICATION
     Route: 042
     Dates: start: 20201210
  17. LIDOCAINE HCL (XYLOCAINE) 2% (PF) [Concomitant]
     Indication: PREMEDICATION
     Route: 042
     Dates: start: 20201210
  18. CEFAZOLIN (ANCEF/KEZOL) 2G/50ML [Concomitant]
     Indication: PREMEDICATION
     Dosage: DEXTROSE IVPB
     Route: 042
     Dates: start: 20201210
  19. VITAMIN D [Concomitant]
     Active Substance: VITAMIN D NOS
     Indication: VITAMIN D DEFICIENCY
     Route: 048
     Dates: start: 20171216
  20. ASCORBIC ACID. [Concomitant]
     Active Substance: ASCORBIC ACID
     Indication: PRODUCT USED FOR UNKNOWN INDICATION
     Dosage: TAKE 1000 MG BY MOUTH ONE TIME DAILY
     Route: 048
  21. ABILIFY [Concomitant]
     Active Substance: ARIPIPRAZOLE
     Indication: PRODUCT USED FOR UNKNOWN INDICATION
     Dosage: TAKE 1 TABLET BY MOUTH DAILY
     Route: 048

REACTIONS (3)
  - Parathyroid tumour benign [Recovered/Resolved]
  - Prescribed underdose [Not Recovered/Not Resolved]
  - Hyperparathyroidism [Recovered/Resolved]

NARRATIVE: CASE EVENT DATE: 201412
